FAERS Safety Report 13439880 (Version 4)
Quarter: 2017Q2

REPORT INFORMATION
  Report Type: Spontaneous
  Country: BR (occurrence: BR)
  Receive Date: 20170413
  Receipt Date: 20170511
  Transmission Date: 20170830
  Serious: Yes (Hospitalization, Other)
  Sender: FDA-Public Use
  Company Number: BR-ABBVIE-17P-020-1943012-00

PATIENT
  Age: 2 Year
  Sex: Male

DRUGS (2)
  1. KLARICID [Suspect]
     Active Substance: CLARITHROMYCIN
     Indication: VIRAL INFECTION
     Route: 048
     Dates: start: 20170310, end: 20170323
  2. DEXAMETHASONE. [Concomitant]
     Active Substance: DEXAMETHASONE
     Indication: PRODUCT USED FOR UNKNOWN INDICATION

REACTIONS (14)
  - Blood test abnormal [Unknown]
  - Cough [Unknown]
  - Product quality issue [Unknown]
  - Vomiting [Unknown]
  - Pyrexia [Unknown]
  - Pruritus [Recovered/Resolved]
  - Drug ineffective [Unknown]
  - Viral infection [Unknown]
  - Bacteraemia [Not Recovered/Not Resolved]
  - Condition aggravated [Unknown]
  - Mycotoxicosis [Unknown]
  - Ear infection [Not Recovered/Not Resolved]
  - Pneumonia [Not Recovered/Not Resolved]
  - Lower respiratory tract infection [Unknown]

NARRATIVE: CASE EVENT DATE: 20170414
